FAERS Safety Report 8069835-0 (Version None)
Quarter: 2012Q1

REPORT INFORMATION
  Report Type: 
  Country: None (occurrence: None)
  Receive Date: 20120125
  Receipt Date: 20120125
  Transmission Date: 20120608
  Serious: Yes (Other)
  Sender: FDA-Public Use
  Company Number: None

PATIENT
  Sex: Female
  Weight: 52.163 kg

DRUGS (2)
  1. PLAN B ONE-STEP [Concomitant]
     Indication: POST COITAL CONTRACEPTION
     Dosage: 1 DOSE
     Route: 048
     Dates: start: 20120122, end: 20120123
  2. PLAN B [Suspect]
     Indication: POST COITAL CONTRACEPTION
     Dosage: 2 DOSES
     Route: 048
     Dates: start: 20090615, end: 20090616

REACTIONS (3)
  - BREAST TENDERNESS [None]
  - GALACTORRHOEA [None]
  - BREAST MILK DISCOLOURATION [None]
